FAERS Safety Report 25379345 (Version 1)
Quarter: 2025Q2

REPORT INFORMATION
  Report Type: Spontaneous
  Country: US (occurrence: None)
  Receive Date: 20250529
  Receipt Date: 20250529
  Transmission Date: 20250717
  Serious: Yes (Hospitalization)
  Sender: FDA-CTU
  Company Number: None

PATIENT
  Age: 84 Year
  Sex: Female
  Weight: 70.2 kg

DRUGS (3)
  1. OHTUVAYRE [Suspect]
     Active Substance: ENSIFENTRINE
     Indication: Chronic obstructive pulmonary disease
     Dosage: FREQUENCY : TWICE A DAY;?
     Route: 055
     Dates: start: 20250526, end: 20250527
  2. TRELEGY ELLIPTA [Concomitant]
     Active Substance: FLUTICASONE FUROATE\UMECLIDINIUM BROMIDE\VILANTEROL TRIFENATATE
  3. ALBUTEROL [Concomitant]
     Active Substance: ALBUTEROL

REACTIONS (3)
  - Dyspnoea [None]
  - Ocular hyperaemia [None]
  - Chest discomfort [None]

NARRATIVE: CASE EVENT DATE: 20250527
